FAERS Safety Report 22659385 (Version 2)
Quarter: 2024Q1

REPORT INFORMATION
  Report Type: Report from Study
  Country: ZA (occurrence: ZA)
  Receive Date: 20230630
  Receipt Date: 20240321
  Transmission Date: 20240410
  Serious: Yes (Hospitalization, Disabling, Other)
  Sender: FDA-Public Use
  Company Number: ZA-002147023-NVSC2023ZA147861

PATIENT
  Age: 43 Year
  Sex: Female

DRUGS (2)
  1. FINGOLIMOD HYDROCHLORIDE [Suspect]
     Active Substance: FINGOLIMOD HYDROCHLORIDE
     Indication: Relapsing-remitting multiple sclerosis
     Dosage: 0.5 MG, QD
     Route: 048
     Dates: start: 20210223
  2. ROBAXIN [Concomitant]
     Active Substance: METHOCARBAMOL
     Indication: Product used for unknown indication
     Dosage: UNK
     Route: 065

REACTIONS (18)
  - Diarrhoea [Unknown]
  - Glaucoma [Unknown]
  - Central nervous system lesion [Unknown]
  - White matter lesion [Unknown]
  - Lymphadenopathy [Unknown]
  - Lymph node pain [Unknown]
  - Synovial disorder [Unknown]
  - Chest pain [Unknown]
  - Influenza like illness [Unknown]
  - Pyrexia [Unknown]
  - Wheezing [Unknown]
  - Red blood cell count increased [Recovered/Resolved]
  - Lymphocyte count increased [Unknown]
  - White blood cell count increased [Unknown]
  - Dyspnoea [Unknown]
  - Arthralgia [Unknown]
  - Fatigue [Unknown]
  - Intervertebral disc protrusion [Unknown]
